FAERS Safety Report 9537033 (Version 7)
Quarter: 2013Q4

REPORT INFORMATION
  Report Type: Report from Study
  Country: US (occurrence: GB)
  Receive Date: 20130919
  Receipt Date: 20131217
  Transmission Date: 20140711
  Serious: Yes (Congenital Anomaly)
  Sender: FDA-Public Use
  Company Number: GB-MYLANLABS-2013S1020735

PATIENT
  Sex: Female
  Weight: 2.5 kg

DRUGS (7)
  1. ZIDOVUDINE [Suspect]
     Route: 064
  2. DARUNAVIR [Suspect]
     Route: 064
  3. ETRAVIRINE [Suspect]
     Route: 064
  4. TIPRANAVIR [Suspect]
     Route: 064
  5. RALTEGRAVIR [Suspect]
     Route: 064
  6. RITONAVIR [Suspect]
     Route: 064
  7. TRUVADA [Suspect]
     Route: 064

REACTIONS (26)
  - Spine malformation [Not Recovered/Not Resolved]
  - Spina bifida [Not Recovered/Not Resolved]
  - Neural tube defect [Not Recovered/Not Resolved]
  - Meconium stain [Not Recovered/Not Resolved]
  - Cloacal exstrophy [Not Recovered/Not Resolved]
  - Tethered cord syndrome [Not Recovered/Not Resolved]
  - Genitalia external ambiguous [Not Recovered/Not Resolved]
  - Gastrointestinal malformation [Not Recovered/Not Resolved]
  - Bladder agenesis [Not Recovered/Not Resolved]
  - Gastrointestinal disorder congenital [Not Recovered/Not Resolved]
  - Erythema [Not Recovered/Not Resolved]
  - Caudal regression syndrome [Not Recovered/Not Resolved]
  - Congenital anomaly [Not Recovered/Not Resolved]
  - Lipodystrophy acquired [Not Recovered/Not Resolved]
  - Anal atresia [Not Recovered/Not Resolved]
  - Congenital genital malformation [Not Recovered/Not Resolved]
  - Umbilical cord abnormality [Not Recovered/Not Resolved]
  - Meningomyelocele [Not Recovered/Not Resolved]
  - Exomphalos [Not Recovered/Not Resolved]
  - Sepsis [Not Recovered/Not Resolved]
  - Blood iron decreased [Not Recovered/Not Resolved]
  - Musculoskeletal discomfort [Not Recovered/Not Resolved]
  - Exomphalos [Not Recovered/Not Resolved]
  - Premature baby [Not Recovered/Not Resolved]
  - Congenital anomaly [Not Recovered/Not Resolved]
  - Foetal exposure during pregnancy [Recovered/Resolved]
